FAERS Safety Report 9249671 (Version 1)
Quarter: 2013Q2

REPORT INFORMATION
  Report Type: Spontaneous
  Country: US (occurrence: US)
  Receive Date: 20130423
  Receipt Date: 20130423
  Transmission Date: 20140414
  Serious: No
  Sender: FDA-Public Use
  Company Number: US-BRISTOL-MYERS SQUIBB COMPANY-17324211

PATIENT
  Age: 69 Year
  Sex: Male
  Weight: 98.86 kg

DRUGS (5)
  1. YERVOY [Suspect]
     Indication: MALIGNANT MELANOMA
     Dosage: LAST DOSE IN AUG12
     Dates: start: 201203
  2. ATENOLOL [Concomitant]
  3. LISINOPRIL [Concomitant]
  4. WARFARIN [Concomitant]
  5. HYDROCORTISONE [Concomitant]

REACTIONS (2)
  - Pruritus [Unknown]
  - Fatigue [Unknown]
